FAERS Safety Report 6856763-9 (Version None)
Quarter: 2010Q3

REPORT INFORMATION
  Report Type: 
  Country: None (occurrence: None)
  Receive Date: 20100719
  Receipt Date: 20100712
  Transmission Date: 20110219
  Serious: Yes (Death, Other)
  Sender: FDA-Public Use
  Company Number: US-ELI_LILLY_AND_COMPANY-US201006000815

PATIENT
  Sex: Male

DRUGS (1)
  1. EFFIENT [Suspect]

REACTIONS (2)
  - DEATH [None]
  - MYOCARDIAL INFARCTION [None]
